FAERS Safety Report 15193514 (Version 1)
Quarter: 2018Q3

REPORT INFORMATION
  Report Type: Spontaneous
  Country: GB (occurrence: GB)
  Receive Date: 20180725
  Receipt Date: 20180725
  Transmission Date: 20181010
  Serious: Yes (Other)
  Sender: FDA-Public Use
  Company Number: GB-TEVA-2008A-01500

PATIENT
  Age: 60 Year
  Sex: Male
  Weight: 97 kg

DRUGS (9)
  1. AMIODARONE (UNKNOWN MANU / STR) [Concomitant]
     Dosage: 200 MILLIGRAM DAILY;
     Route: 048
     Dates: start: 2004, end: 200803
  2. ASPIRIN. [Concomitant]
     Active Substance: ASPIRIN
     Dosage: 75 MILLIGRAM DAILY;
     Route: 048
     Dates: start: 2000
  3. NICORANDIL [Concomitant]
     Active Substance: NICORANDIL
     Dosage: 20 MILLIGRAM DAILY;
     Route: 048
     Dates: start: 2002
  4. BISOPROLOL (UNKNOWN) [Suspect]
     Active Substance: BISOPROLOL
     Dosage: 2.5 MILLIGRAM DAILY;
     Route: 048
     Dates: start: 2004
  5. CITALOPRAM (UNKNOWN MANU / STR) [Concomitant]
     Dosage: 70 MILLIGRAM DAILY;
     Dates: start: 2000
  6. LANSOPRAZOLE (UNK MAN/ UNK STR) [Concomitant]
     Dosage: 30 MILLIGRAM DAILY;
     Dates: start: 2008
  7. PRAVASTATIN (UNK MANU/ STR) [Concomitant]
     Dosage: 40 MILLIGRAM DAILY;
     Dates: start: 2000
  8. BISOPROLOL (UNKNOWN) [Suspect]
     Active Substance: BISOPROLOL
     Dosage: 5 MILLIGRAM DAILY;
     Route: 048
     Dates: start: 2004
  9. DOSULEPIN HYDROCHLORIDE [Concomitant]
     Active Substance: DOTHIEPIN HYDROCHLORIDE
     Dosage: 25 MILLIGRAM DAILY;
     Dates: start: 2006

REACTIONS (2)
  - Dyspnoea [Not Recovered/Not Resolved]
  - Idiopathic pulmonary fibrosis [Not Recovered/Not Resolved]

NARRATIVE: CASE EVENT DATE: 2007
